FAERS Safety Report 24208173 (Version 2)
Quarter: 2024Q4

REPORT INFORMATION
  Report Type: Spontaneous
  Country: US (occurrence: US)
  Receive Date: 20240814
  Receipt Date: 20241211
  Transmission Date: 20250115
  Serious: No
  Sender: SPECGX
  Company Number: US-SPECGX-T202401152

PATIENT
  Sex: Male
  Weight: 82 kg

DRUGS (3)
  1. FENTANYL TRANSDERMAL SYSTEM [Suspect]
     Active Substance: FENTANYL
     Indication: Pain
     Dosage: UNK
     Route: 062
     Dates: start: 20240514
  2. MORPHINE [Suspect]
     Active Substance: MORPHINE
     Indication: Product used for unknown indication
     Dosage: UNK
     Route: 065
  3. OXYCODONE [Concomitant]
     Active Substance: OXYCODONE
     Indication: Pain
     Dosage: 10 MILLIGRAM, BID (2 TO 3 TABLETS)
     Route: 048

REACTIONS (3)
  - Drug hypersensitivity [Unknown]
  - Product physical issue [Unknown]
  - Drug ineffective [Unknown]
